FAERS Safety Report 25563098 (Version 1)
Quarter: 2025Q3

REPORT INFORMATION
  Report Type: Report from Study
  Country: US (occurrence: US)
  Receive Date: 20250716
  Receipt Date: 20250716
  Transmission Date: 20251021
  Serious: Yes (Other)
  Sender: Unknown Manufacturer
  Company Number: US-MTPC-MTPA2025-0010604

PATIENT
  Sex: Female

DRUGS (10)
  1. RADICAVA ORS [Suspect]
     Active Substance: EDARAVONE
     Dosage: 105 MILLIGRAM (5 ML), QD FOR 10 DAYS OUT OF 14 DAYS, FOLLOWED BY 14-DAY DRUG-FREE PERIOD
     Route: 048
  2. RADICAVA ORS [Suspect]
     Active Substance: EDARAVONE
     Dosage: 105 MILLIGRAM (5 ML), QD FOR 10 DAYS OUT OF 14 DAYS, FOLLOWED BY 14-DAY DRUG-FREE PERIOD
     Route: 048
  3. RADICAVA ORS [Suspect]
     Active Substance: EDARAVONE
     Indication: Amyotrophic lateral sclerosis
     Dosage: 5 MILLILITER, QD FOR 14 DAYS ON, 14 DAYS OFF
     Route: 048
  4. RADICAVA ORS [Suspect]
     Active Substance: EDARAVONE
     Indication: Amyotrophic lateral sclerosis
     Dosage: 5 MILLILITER, QD FOR 14 DAYS ON, 14 DAYS OFF
     Route: 048
  5. ALIGN [Concomitant]
     Active Substance: BIFIDOBACTERIUM LONGUM SUBSP. INFANTIS
     Indication: Product used for unknown indication
     Route: 065
  6. AMITRIPTYLINE HYDROCHLORIDE [Concomitant]
     Active Substance: AMITRIPTYLINE HYDROCHLORIDE
     Indication: Product used for unknown indication
     Route: 065
  7. CETIRIZINE HCL [Concomitant]
     Active Substance: CETIRIZINE HYDROCHLORIDE
     Indication: Product used for unknown indication
     Route: 065
  8. RILUZOLE [Concomitant]
     Active Substance: RILUZOLE
     Indication: Product used for unknown indication
     Route: 065
  9. VITAMIN B12 [Concomitant]
     Active Substance: CYANOCOBALAMIN
     Indication: Product used for unknown indication
     Route: 065
  10. VITAMIN D3 [Concomitant]
     Active Substance: CHOLECALCIFEROL
     Indication: Product used for unknown indication
     Route: 065

REACTIONS (3)
  - Liver injury [Unknown]
  - Hepatic enzyme increased [Unknown]
  - Blood test abnormal [Unknown]
